FAERS Safety Report 25637637 (Version 1)
Quarter: 2025Q3

REPORT INFORMATION
  Report Type: Report from Study
  Country: KR (occurrence: KR)
  Receive Date: 20250804
  Receipt Date: 20250804
  Transmission Date: 20251021
  Serious: Yes (Hospitalization, Other)
  Sender: TAKEDA
  Company Number: KR-TAKEDA-2025TUS068474

PATIENT
  Age: 39 Year
  Sex: Male
  Weight: 55 kg

DRUGS (6)
  1. VEDOLIZUMAB [Suspect]
     Active Substance: VEDOLIZUMAB
     Indication: Crohn^s disease
     Dates: start: 20230115, end: 20231211
  2. VEDOLIZUMAB [Suspect]
     Active Substance: VEDOLIZUMAB
     Dosage: 108 MILLIGRAM, QD
     Dates: start: 20240206
  3. Mago [Concomitant]
     Dosage: 500 MILLIGRAM, TID
     Dates: start: 20240305, end: 20240624
  4. MAGNESIUM HYDROXIDE [Concomitant]
     Active Substance: MAGNESIUM HYDROXIDE
     Dosage: 500 MILLIGRAM, TID
     Dates: start: 20240625
  5. AZATHIOPRINE [Concomitant]
     Active Substance: AZATHIOPRINE
     Dosage: 50 MILLIGRAM, BID
     Dates: start: 201004, end: 20241125
  6. AZATHIOPRINE [Concomitant]
     Active Substance: AZATHIOPRINE
     Dosage: 50 MILLIGRAM, QD
     Dates: start: 20241126

REACTIONS (1)
  - Anorectal stenosis [Recovering/Resolving]

NARRATIVE: CASE EVENT DATE: 20240607
